FAERS Safety Report 22068330 (Version 2)
Quarter: 2023Q1

REPORT INFORMATION
  Report Type: Other
  Country: FR (occurrence: FR)
  Receive Date: 20230307
  Receipt Date: 20230315
  Transmission Date: 20230418
  Serious: Yes (Death, Other)
  Sender: FDA-Public Use
  Company Number: None

PATIENT
  Age: 68 Year
  Sex: Male
  Weight: 63 kg

DRUGS (2)
  1. PADCEV [Suspect]
     Active Substance: ENFORTUMAB VEDOTIN-EJFV
     Indication: Transitional cell carcinoma
     Dosage: 1.25 MG/KG, UNKNOWN FREQ. (C1D1 ON JANUARY 26, 2023, C1D8 (FEBRUARY 09, 2023) AND C1D15 ON FEBRUARY
     Route: 042
     Dates: start: 20230126, end: 20230209
  2. PADCEV [Suspect]
     Active Substance: ENFORTUMAB VEDOTIN-EJFV
     Indication: Transitional cell carcinoma
     Dosage: 1.25 MG/KG, UNKNOWN FREQ. (C1D1 ON JANUARY 26, 2023, C1D8 (FEBRUARY 02, 2023) AND  C1D15 ON FEBRUARY
     Route: 042
     Dates: start: 20230126, end: 20230209

REACTIONS (4)
  - Genital ulceration [Fatal]
  - Agranulocytosis [Fatal]
  - Dermatitis exfoliative generalised [Fatal]
  - Mouth ulceration [Fatal]

NARRATIVE: CASE EVENT DATE: 20230214
